FAERS Safety Report 9960061 (Version 1)
Quarter: 2014Q1

REPORT INFORMATION
  Report Type: Report from Study
  Country: US (occurrence: US)
  Receive Date: 20140305
  Receipt Date: 20140305
  Transmission Date: 20141002
  Serious: No
  Sender: FDA-Public Use
  Company Number: US-ABBVIE-13P-163-1105018-00

PATIENT
  Age: 51 Year
  Sex: Female

DRUGS (4)
  1. HUMIRA [Suspect]
     Indication: PSORIASIS
     Dates: start: 20130601, end: 20130601
  2. HUMIRA [Suspect]
     Dates: start: 20130608
  3. SORIATANE [Concomitant]
     Indication: PRODUCT USED FOR UNKNOWN INDICATION
  4. CALCITRIOL [Concomitant]
     Indication: PRODUCT USED FOR UNKNOWN INDICATION

REACTIONS (1)
  - Oedema peripheral [Recovering/Resolving]
